FAERS Safety Report 24033215 (Version 1)
Quarter: 2024Q3

REPORT INFORMATION
  Report Type: Spontaneous
  Country: US (occurrence: US)
  Receive Date: 20240701
  Receipt Date: 20240701
  Transmission Date: 20241017
  Serious: No
  Sender: APOTEX
  Company Number: US-APOTEX-2023AP011110

PATIENT
  Sex: Female

DRUGS (4)
  1. ATORVASTATIN [Suspect]
     Active Substance: ATORVASTATIN
     Indication: Product used for unknown indication
     Dosage: UNK
     Route: 065
  2. AMLODIPINE [Suspect]
     Active Substance: AMLODIPINE BESYLATE
     Indication: Product used for unknown indication
     Dosage: UNK
     Route: 065
  3. IBRUTINIB [Suspect]
     Active Substance: IBRUTINIB
     Indication: Waldenstrom^s macroglobulinaemia
     Dosage: UNK
     Route: 065
  4. IBRUTINIB [Suspect]
     Active Substance: IBRUTINIB
     Dosage: 280 MILLIGRAM, QD
     Route: 065

REACTIONS (9)
  - Rash pustular [Recovered/Resolved]
  - Skin toxicity [Recovered/Resolved]
  - Photosensitivity reaction [Recovered/Resolved]
  - Xerosis [Recovered/Resolved]
  - Nail dystrophy [Recovered/Resolved]
  - Hair texture abnormal [Recovered/Resolved]
  - Trichorrhexis [Recovered/Resolved]
  - Ecchymosis [Recovered/Resolved]
  - Onychoclasis [Recovered/Resolved]
